FAERS Safety Report 6414936-3 (Version None)
Quarter: 2009Q4

REPORT INFORMATION
  Report Type: 
  Country: None (occurrence: None)
  Receive Date: 20091026
  Receipt Date: 20090406
  Transmission Date: 20100525
  Serious: No
  Sender: FDA-Public Use
  Company Number: US-ABBOTT-09P-163-0567161-00

PATIENT
  Sex: Female
  Weight: 83.99 kg

DRUGS (5)
  1. LUPRON DEPOT [Suspect]
     Indication: ENDOMETRIOSIS
     Dates: start: 20080701
  2. ZOMIG [Concomitant]
     Indication: MIGRAINE
     Dates: start: 19960101
  3. OXYCODONE [Concomitant]
     Indication: MIGRAINE
     Dates: start: 19890101
  4. FLEXERIL [Concomitant]
     Indication: DRUG USE FOR UNKNOWN INDICATION
     Dates: start: 19880101
  5. DIAZEPAM [Concomitant]
     Indication: AFFECTIVE DISORDER

REACTIONS (4)
  - ABDOMINAL PAIN [None]
  - BONE PAIN [None]
  - MIGRAINE [None]
  - MOOD SWINGS [None]
